FAERS Safety Report 5202634-3 (Version None)
Quarter: 2007Q1

REPORT INFORMATION
  Report Type: 
  Country: None (occurrence: None)
  Receive Date: 20070109
  Receipt Date: 20061211
  Transmission Date: 20070707
  Serious: Yes (Hospitalization, Other)
  Sender: FDA-Public Use
  Company Number: US-PFIZER INC-2006153172

PATIENT
  Sex: Female
  Weight: 54.4 kg

DRUGS (3)
  1. BEXTRA [Suspect]
     Indication: ARTHRALGIA
     Dates: start: 20030421, end: 20030604
  2. BEXTRA [Suspect]
     Indication: PAIN IN EXTREMITY
  3. BEXTRA [Suspect]
     Indication: BACK PAIN

REACTIONS (14)
  - ABDOMINAL PAIN [None]
  - CHEST PAIN [None]
  - CORONARY ARTERY OCCLUSION [None]
  - DEPRESSION [None]
  - DIZZINESS [None]
  - FATIGUE [None]
  - GASTRIC DISORDER [None]
  - GASTRIC ULCER [None]
  - HEADACHE [None]
  - HYPERTENSION [None]
  - MYOCARDIAL INFARCTION [None]
  - NAUSEA [None]
  - RASH [None]
  - WEIGHT DECREASED [None]
